FAERS Safety Report 15290270 (Version 1)
Quarter: 2018Q3

REPORT INFORMATION
  Report Type: Spontaneous
  Country: US (occurrence: US)
  Receive Date: 20180817
  Receipt Date: 20180817
  Transmission Date: 20181010
  Serious: Yes (Other)
  Sender: FDA-Public Use
  Company Number: US-AMGEN-USASP2018063676

PATIENT
  Age: 68 Year
  Sex: Female

DRUGS (6)
  1. POTASSIUM [Concomitant]
     Active Substance: POTASSIUM
     Indication: HYPERKALAEMIA
     Dosage: 20 MEQ, UNK
  2. CALCIUM [Concomitant]
     Active Substance: CALCIUM
  3. PROTEIN [Concomitant]
     Active Substance: PROTEIN
     Dosage: UNK
  4. PROLIA [Suspect]
     Active Substance: DENOSUMAB
     Indication: OSTEOPOROSIS POSTMENOPAUSAL
     Dosage: UNK, UNK
     Route: 065
     Dates: start: 20180322
  5. MIRALAX [Concomitant]
     Active Substance: POLYETHYLENE GLYCOL 3350
     Dosage: UNK UNK, QD
  6. HYDROCHLOROTHIAZIDE. [Concomitant]
     Active Substance: HYDROCHLOROTHIAZIDE
     Indication: FAMILIAL HYPOCALCIURIC HYPERCALCAEMIA
     Dosage: 50 MG, UNK

REACTIONS (6)
  - Rash pruritic [Recovered/Resolved]
  - Gait disturbance [Recovered/Resolved]
  - Bone loss [Unknown]
  - Hypoaesthesia oral [Unknown]
  - Stress fracture [Unknown]
  - Pain in jaw [Recovered/Resolved]

NARRATIVE: CASE EVENT DATE: 2018
